FAERS Safety Report 9210538 (Version 2)
Quarter: 2013Q4

REPORT INFORMATION
  Report Type: Spontaneous
  Country: US (occurrence: US)
  Receive Date: 20130404
  Receipt Date: 20131212
  Transmission Date: 20140711
  Serious: Yes (Other)
  Sender: FDA-Public Use
  Company Number: US-BAYER-2013-041130

PATIENT
  Age: 27 Year
  Sex: Female

DRUGS (5)
  1. YASMIN [Suspect]
     Dosage: UNK
     Dates: start: 200905
  2. YAZ [Suspect]
     Dosage: UNK
     Dates: start: 200905
  3. ADVAIR [Concomitant]
  4. OMEPRAZOLE [Concomitant]
     Dosage: 20 MG, UNK
  5. ALBUTEROL INHALER [Concomitant]

REACTIONS (6)
  - Gallbladder injury [None]
  - Cholecystitis [None]
  - Pain [None]
  - Injury [None]
  - Pain [None]
  - Fear of disease [None]
